FAERS Safety Report 9447993 (Version 1)
Quarter: 2013Q3

REPORT INFORMATION
  Report Type: Spontaneous
  Country: CH (occurrence: None)
  Receive Date: 20130806
  Receipt Date: 20130806
  Transmission Date: 20140515
  Serious: Yes (Hospitalization, Congenital Anomaly)
  Sender: FDA-Public Use
  Company Number: 2013P1013475

PATIENT
  Age: 5 Year
  Sex: Female

DRUGS (2)
  1. DEXAMETHASONE [Suspect]
     Indication: VIRILISM FOETAL
     Route: 064
  2. DEXAMETHASONE [Suspect]
     Indication: PROPHYLAXIS
     Route: 064

REACTIONS (15)
  - Maternal drugs affecting foetus [None]
  - Foetal growth restriction [None]
  - Caesarean section [None]
  - Lethargy [None]
  - Hypoglycaemia neonatal [None]
  - Upper respiratory tract infection [None]
  - Gastroenteritis [None]
  - Loss of consciousness [None]
  - Blood glucose decreased [None]
  - Hypotension [None]
  - Brain oedema [None]
  - Ischaemic stroke [None]
  - Partial seizures [None]
  - Encephalopathy [None]
  - Central nervous system lesion [None]
